FAERS Safety Report 8520467-7 (Version None)
Quarter: 2012Q3

REPORT INFORMATION
  Report Type: 
  Country: None (occurrence: None)
  Receive Date: 20120709
  Receipt Date: 20120623
  Transmission Date: 20120928
  Serious: Yes (Other)
  Sender: FDA-Public Use
  Company Number: 2012AP001973

PATIENT
  Age: 40 Year
  Sex: Female

DRUGS (2)
  1. TIZANIDINE HYDROCHLORIDE [Suspect]
     Indication: MIGRAINE
     Dosage: 2 MG;TID; 8 MG;TID; 18 MG;QD;
  2. TIZANIDINE HYDROCHLORIDE [Suspect]
     Indication: OFF LABEL USE
     Dosage: 2 MG;TID; 8 MG;TID; 18 MG;QD;

REACTIONS (3)
  - BRADYCARDIA [None]
  - OFF LABEL USE [None]
  - HALLUCINATION, VISUAL [None]
